FAERS Safety Report 13311007 (Version 3)
Quarter: 2021Q2

REPORT INFORMATION
  Report Type: Spontaneous
  Country: US (occurrence: US)
  Receive Date: 20170309
  Receipt Date: 20210602
  Transmission Date: 20210716
  Serious: Yes (Other)
  Sender: FDA-Public Use
  Company Number: US-JNJFOC-20170213645

PATIENT
  Sex: Male

DRUGS (1)
  1. INVEGA [Suspect]
     Active Substance: PALIPERIDONE
     Indication: PRODUCT USED FOR UNKNOWN INDICATION
     Route: 048
     Dates: start: 20120827, end: 2014

REACTIONS (5)
  - Gynaecomastia [Unknown]
  - Pituitary tumour [Unknown]
  - Emotional disorder [Unknown]
  - Hypogonadism [Unknown]
  - Weight increased [Unknown]
